FAERS Safety Report 9185732 (Version 1)
Quarter: 2013Q1

REPORT INFORMATION
  Report Type: Report from Study
  Country: DE (occurrence: DE)
  Receive Date: 20130325
  Receipt Date: 20130325
  Transmission Date: 20140127
  Serious: Yes (Hospitalization)
  Sender: FDA-Public Use
  Company Number: DE-TEVA-392368ISR

PATIENT
  Age: 75 Year
  Sex: Female
  Weight: 66 kg

DRUGS (5)
  1. PACLITAXEL [Suspect]
     Dosage: 20 MILLIGRAM DAILY; DATE OF LAST DOSE PRIOR TO SAE: 18/OCT/2012
     Route: 042
     Dates: start: 20120911
  2. CARBOPLATIN [Suspect]
     Dosage: 12.4286 DOSAGE FORMS DAILY; 1 DF = AUC, DATE OF LAST DOSE PRIOR TO SAE 18-OCT-2012 (AUC 1.5)
     Route: 042
     Dates: start: 20120911
  3. LIPOSOMAL DOXORUBICIN [Suspect]
     Dosage: DATE OF LAST DOSE PRIOR TO SAE 18-OCT-2012
     Route: 042
     Dates: start: 20120911
  4. TRASTUZUMAB [Suspect]
     Dosage: 26.2857 MILLIGRAM DAILY; DATE OF LAST DOSE PRIOR TO SAE 10-OCT-2012
     Route: 042
     Dates: start: 20120911
  5. LAPATINIB [Suspect]
     Dosage: 750 MILLIGRAM DAILY; DATE OF LAST DOSE PRIOR TO SAE 21-OCT-2012
     Route: 048
     Dates: start: 20120911

REACTIONS (6)
  - Orthostatic intolerance [Unknown]
  - Nausea [None]
  - Diarrhoea [None]
  - Weight decreased [None]
  - Blood creatinine increased [None]
  - Neutropenia [None]
